FAERS Safety Report 9958386 (Version 1)
Quarter: 2014Q1

REPORT INFORMATION
  Report Type: Spontaneous
  Country: FR (occurrence: FR)
  Receive Date: 20140305
  Receipt Date: 20140305
  Transmission Date: 20141002
  Serious: Yes (Other)
  Sender: FDA-Public Use
  Company Number: PHHY2014FR024243

PATIENT
  Age: 13 Year
  Sex: Male

DRUGS (8)
  1. CICLOSPORIN [Suspect]
     Indication: IMMUNOSUPPRESSION
  2. PREDNISONE [Suspect]
     Indication: IMMUNOSUPPRESSION
  3. CYCLOPHOSPHAMIDE [Concomitant]
  4. ADRIAMYCIN [Concomitant]
  5. METHOTREXATE [Concomitant]
  6. CIS-PLATINUM [Concomitant]
  7. ARACYTIN [Concomitant]
     Dosage: UNK
  8. AZATHIOPRIN [Concomitant]
     Indication: IMMUNOSUPPRESSION

REACTIONS (1)
  - Post transplant lymphoproliferative disorder [Unknown]
